FAERS Safety Report 10516989 (Version 1)
Quarter: 2014Q4

REPORT INFORMATION
  Report Type: Spontaneous
  Country: US (occurrence: None)
  Receive Date: 20141003
  Receipt Date: 20141003
  Transmission Date: 20150528
  Serious: Yes (Hospitalization)
  Sender: FDA-Public Use
  Company Number: 1411149

PATIENT
  Sex: Female

DRUGS (4)
  1. RIBASPHERE RIBAPAK [Suspect]
     Active Substance: RIBAVIRIN
     Indication: HEPATITIS C
     Dosage: 600 MG (1 IN 12 HR) , ORAL
     Route: 048
     Dates: start: 201402
  2. PEGASYS [Suspect]
     Active Substance: PEGINTERFERON ALFA-2A
     Indication: HEPATITIS C
     Route: 058
     Dates: start: 201402, end: 201405
  3. SOVALDI [Suspect]
     Active Substance: SOFOSBUVIR
     Indication: HEPATITIS C
     Route: 048
  4. METOPROLOL [Concomitant]
     Active Substance: METOPROLOL

REACTIONS (7)
  - Fatigue [None]
  - Weight decreased [None]
  - Rash [None]
  - Blood glucose increased [None]
  - Loss of consciousness [None]
  - Haemoglobin decreased [None]
  - Irritability [None]
